FAERS Safety Report 13815909 (Version 3)
Quarter: 2017Q4

REPORT INFORMATION
  Report Type: Spontaneous
  Country: US (occurrence: US)
  Receive Date: 20170731
  Receipt Date: 20171112
  Transmission Date: 20180320
  Serious: Yes (Death, Hospitalization, Other)
  Sender: FDA-Public Use
  Company Number: US-TEVA-790872USA

PATIENT
  Age: 57 Year
  Sex: Male
  Weight: 92.4 kg

DRUGS (8)
  1. CICLOSPORIN [Suspect]
     Active Substance: CYCLOSPORINE
     Dosage: CONTINUOUSLY, VARIOUS DOSES
     Route: 042
     Dates: start: 201701
  2. CICLOSPORIN [Suspect]
     Active Substance: CYCLOSPORINE
     Dosage: CONTINUOUSLY, VARIOUS DOSES
     Route: 048
     Dates: start: 201701
  3. METHYLPREDNISOLONE. [Suspect]
     Active Substance: METHYLPREDNISOLONE
     Indication: GRAFT VERSUS HOST DISEASE
     Dosage: 80 MILLIGRAM DAILY;
     Route: 042
     Dates: start: 20170423, end: 20170423
  4. SIROLIMUS. [Suspect]
     Active Substance: SIROLIMUS
     Dosage: 1 MILLIGRAM DAILY;
     Route: 048
     Dates: start: 20170523, end: 20170617
  5. INCB018424 [Suspect]
     Active Substance: RUXOLITINIB
     Indication: GRAFT VERSUS HOST DISEASE
     Dosage: 10 MILLIGRAM DAILY;
     Route: 048
     Dates: start: 20170509, end: 20170523
  6. PREDNISONE. [Suspect]
     Active Substance: PREDNISONE
     Indication: GRAFT VERSUS HOST DISEASE
     Dosage: 80 MILLIGRAM DAILY; (STEROID TAPER UNSPECIFIED)
     Route: 048
     Dates: start: 20170424
  7. GANCICLOVIR. [Suspect]
     Active Substance: GANCICLOVIR
     Dosage: 200 MILLIGRAM DAILY;
     Route: 042
     Dates: start: 20170502, end: 20170613
  8. GANCICLOVIR. [Suspect]
     Active Substance: GANCICLOVIR
     Dosage: 100-200 MG
     Route: 042
     Dates: start: 20170502, end: 20170613

REACTIONS (4)
  - Candida infection [Fatal]
  - Bacterascites [Unknown]
  - Neutropenia [Unknown]
  - Graft versus host disease [Unknown]

NARRATIVE: CASE EVENT DATE: 2017
